FAERS Safety Report 5580018-6 (Version None)
Quarter: 2007Q4

REPORT INFORMATION
  Report Type: 
  Country: None (occurrence: None)
  Receive Date: 20071227
  Receipt Date: 20071227
  Transmission Date: 20080405
  Serious: Yes (Other)
  Sender: FDA-Public Use
  Company Number: None

PATIENT
  Age: 56 Year
  Sex: Male
  Weight: 109 kg

DRUGS (2)
  1. TRANEXAMIC ACID 1G/10ML PFIZER [Suspect]
     Indication: HAEMORRHAGE PROPHYLAXIS
     Dosage: TRANEXAMIC ACID 400 MG/HR IV DRIP
     Route: 041
     Dates: start: 20071207, end: 20071207
  2. TRANEXAMIC ACID 1G/10ML PFIZER [Suspect]
     Indication: POSTOPERATIVE CARE
     Dosage: TRANEXAMIC ACID 400 MG/HR IV DRIP
     Route: 041
     Dates: start: 20071207, end: 20071207

REACTIONS (2)
  - CONVULSION [None]
  - PSYCHOMOTOR HYPERACTIVITY [None]
